FAERS Safety Report 16186435 (Version 1)
Quarter: 2019Q2

REPORT INFORMATION
  Report Type: Spontaneous
  Country: CN (occurrence: CN)
  Receive Date: 20190411
  Receipt Date: 20190411
  Transmission Date: 20190711
  Serious: Yes (Other)
  Sender: FDA-Public Use
  Company Number: CN-ELI_LILLY_AND_COMPANY-CN201904005110

PATIENT
  Sex: Male

DRUGS (1)
  1. STRATTERA [Suspect]
     Active Substance: ATOMOXETINE HYDROCHLORIDE
     Indication: PSYCHOMOTOR HYPERACTIVITY
     Dosage: 25 MG, DAILY
     Route: 048
     Dates: start: 20190315

REACTIONS (9)
  - Asthenia [Unknown]
  - Pain in extremity [Unknown]
  - Pyrexia [Unknown]
  - Dizziness [Unknown]
  - Discomfort [Unknown]
  - Headache [Unknown]
  - Listless [Unknown]
  - Depressed mood [Unknown]
  - Decreased appetite [Unknown]

NARRATIVE: CASE EVENT DATE: 20190315
